FAERS Safety Report 18783545 (Version 3)
Quarter: 2021Q1

REPORT INFORMATION
  Report Type: Spontaneous
  Country: US (occurrence: US)
  Receive Date: 20210125
  Receipt Date: 20210323
  Transmission Date: 20210419
  Serious: No
  Sender: FDA-Public Use
  Company Number: US-PFIZER INC-2021034663

PATIENT
  Age: 94 Year
  Sex: Female

DRUGS (1)
  1. RETACRIT [Suspect]
     Active Substance: EPOETIN ALFA-EPBX
     Dosage: UNK
     Dates: start: 202010

REACTIONS (3)
  - Therapeutic response unexpected [Unknown]
  - Increased appetite [Unknown]
  - Nephropathy [Unknown]
